FAERS Safety Report 20756090 (Version 1)
Quarter: 2022Q2

REPORT INFORMATION
  Report Type: Spontaneous
  Country: ES (occurrence: ES)
  Receive Date: 20220427
  Receipt Date: 20220427
  Transmission Date: 20220721
  Serious: Yes (Other)
  Sender: FDA-Public Use
  Company Number: ES-JNJFOC-20220438371

PATIENT

DRUGS (4)
  1. IBUPROFEN [Suspect]
     Active Substance: IBUPROFEN
     Indication: Skin test
     Route: 065
  2. METAMIZOLE [Suspect]
     Active Substance: METAMIZOLE
     Indication: Product used for unknown indication
     Route: 065
  3. NAPROXEN [Suspect]
     Active Substance: NAPROXEN
     Indication: Product used for unknown indication
     Route: 065
  4. ASPIRIN [Suspect]
     Active Substance: ASPIRIN
     Indication: Product used for unknown indication
     Route: 065

REACTIONS (14)
  - Agranulocytosis [Unknown]
  - Immune thrombocytopenia [Unknown]
  - Tubulointerstitial nephritis [Unknown]
  - Product use in unapproved indication [Unknown]
  - Off label use [Unknown]
  - Erythema multiforme [Unknown]
  - Acute generalised exanthematous pustulosis [Unknown]
  - Drug reaction with eosinophilia and systemic symptoms [Unknown]
  - Stevens-Johnson syndrome [Unknown]
  - Hepatitis [Unknown]
  - Gastroenteritis eosinophilic [Unknown]
  - Rash [Unknown]
  - Urticaria [Unknown]
  - Eosinophilia [Unknown]
